FAERS Safety Report 17859517 (Version 1)
Quarter: 2020Q2

REPORT INFORMATION
  Report Type: Report from Study
  Country: ES (occurrence: ES)
  Receive Date: 20200604
  Receipt Date: 20200604
  Transmission Date: 20200714
  Serious: Yes (Hospitalization)
  Sender: FDA-Public Use
  Company Number: ES-TEVA-2020-ES-1243725

PATIENT
  Age: 80 Year
  Sex: Male

DRUGS (6)
  1. DOXAZOSINA (2387A) [Suspect]
     Active Substance: DOXAZOSIN MESYLATE
     Indication: ESSENTIAL HYPERTENSION
     Dosage: 4 MG
     Route: 048
     Dates: start: 20140725, end: 20191120
  2. CALCIO CARBONATO + COLECALCIFEROL [Concomitant]
     Indication: OSTEOPOROSIS
     Dosage: 1 KU
     Route: 048
     Dates: start: 20161028, end: 20191118
  3. PREDNISONA (886A) [Concomitant]
     Active Substance: PREDNISONE
     Indication: TEMPORAL ARTERITIS
     Dosage: 7.5 MG
     Route: 048
     Dates: start: 20191003
  4. BOI-K ASPARTICO COMPRIMIDOS EFERVESCENTES, 20 COMPRIMIDOS [Concomitant]
     Indication: HYPOKALAEMIA
     Dosage: 5 GRAM
     Route: 048
     Dates: start: 20190102, end: 20191118
  5. INDAPAMIDA (1776A) [Concomitant]
     Active Substance: INDAPAMIDE
     Indication: ESSENTIAL HYPERTENSION
     Dosage: 1.5 MG
     Route: 048
     Dates: start: 20150309
  6. BISOPROLOL (2328A) [Interacting]
     Active Substance: BISOPROLOL
     Indication: ATRIAL FIBRILLATION
     Dosage: 1.25 MG
     Route: 048
     Dates: start: 20140214, end: 20191118

REACTIONS (3)
  - Drug interaction [Unknown]
  - Syncope [Recovered/Resolved]
  - Bradycardia [Recovered/Resolved]

NARRATIVE: CASE EVENT DATE: 20191118
